FAERS Safety Report 14507764 (Version 1)
Quarter: 2018Q1

REPORT INFORMATION
  Report Type: Spontaneous
  Country: US (occurrence: US)
  Receive Date: 20180208
  Receipt Date: 20180208
  Transmission Date: 20180509
  Serious: No
  Sender: FDA-Public Use
  Company Number: US-PURDUE-USA-2018-0142351

PATIENT
  Sex: Female

DRUGS (1)
  1. BUTRANS [Suspect]
     Active Substance: BUPRENORPHINE
     Indication: BONE PAIN
     Dosage: 7.5 MCG/HR, WEEKLY
     Route: 062

REACTIONS (1)
  - Inadequate analgesia [Not Recovered/Not Resolved]
